FAERS Safety Report 7273526-3 (Version None)
Quarter: 2010Q4

REPORT INFORMATION
  Report Type: 
  Country: None (occurrence: None)
  Receive Date: 20101130
  Receipt Date: 20100218
  Transmission Date: 20110411
  Serious: Yes (Hospitalization)
  Sender: FDA-Public Use
  Company Number: 2010SP010768

PATIENT
  Age: 35 Year
  Sex: Female
  Weight: 72.5755 kg

DRUGS (5)
  1. NUVARING [Suspect]
     Indication: CONTRACEPTION
     Dates: start: 20070501, end: 20080301
  2. NUVARING [Suspect]
     Indication: POLYCYSTIC OVARIES
     Dates: start: 20070501, end: 20080301
  3. NUVARING [Suspect]
  4. ADVIL LIQUI-GELS [Concomitant]
  5. SUDAFED 12 HOUR [Concomitant]

REACTIONS (6)
  - DYSPNOEA [None]
  - HEADACHE [None]
  - HYPOXIA [None]
  - NASAL CONGESTION [None]
  - PAIN [None]
  - PULMONARY EMBOLISM [None]
